FAERS Safety Report 10920588 (Version 1)
Quarter: 2015Q1

REPORT INFORMATION
  Report Type: Spontaneous
  Country: AU (occurrence: AU)
  Receive Date: 20150317
  Receipt Date: 20150317
  Transmission Date: 20150721
  Serious: Yes (Death, Hospitalization)
  Sender: FDA-Public Use
  Company Number: PHHY2015AU029287

PATIENT
  Age: 73 Year
  Sex: Male
  Weight: 74 kg

DRUGS (10)
  1. ENOXAPARIN [Concomitant]
     Active Substance: ENOXAPARIN
     Indication: PRODUCT USED FOR UNKNOWN INDICATION
     Route: 065
  2. PARACETAMOL [Concomitant]
     Active Substance: ACETAMINOPHEN
     Indication: BONE PAIN
     Route: 065
  3. NEXIUM [Concomitant]
     Active Substance: ESOMEPRAZOLE MAGNESIUM
     Indication: REFLUX GASTRITIS
     Route: 065
  4. HYDROCHLOROTHIAZIDE. [Concomitant]
     Active Substance: HYDROCHLOROTHIAZIDE
     Indication: HYPERTENSION
     Route: 065
  5. ATORVASTATIN [Concomitant]
     Active Substance: ATORVASTATIN
     Indication: HYPERCHOLESTEROLAEMIA
     Route: 065
     Dates: start: 20141007, end: 20141105
  6. MIDAZOLAM [Suspect]
     Active Substance: MIDAZOLAM\MIDAZOLAM HYDROCHLORIDE
     Indication: NON-SMALL CELL LUNG CANCER
     Dosage: 2 MG, 1 PER DAY CYCLIC ON DAY 7 AND ON CYCLE 1 DAY 15
     Route: 048
     Dates: start: 20140703, end: 20140723
  7. ZOMETA [Suspect]
     Active Substance: ZOLEDRONIC ACID
     Indication: BONE DISORDER
     Dosage: 4 MG, EVERY 3 WEEKS
     Route: 042
     Dates: start: 20141022, end: 20141022
  8. METOCLOPRAMIDE. [Concomitant]
     Active Substance: METOCLOPRAMIDE
     Indication: NAUSEA
     Route: 065
  9. COLOXYL [Concomitant]
     Active Substance: DOCUSATE SODIUM
     Indication: CONSTIPATION
     Route: 065
  10. SENNA [Concomitant]
     Active Substance: SENNA LEAF\SENNOSIDES\SENNOSIDES A AND B
     Indication: CONSTIPATION
     Route: 065

REACTIONS (21)
  - General physical health deterioration [Unknown]
  - Oedema peripheral [Unknown]
  - Infection [Unknown]
  - Rash [Recovering/Resolving]
  - Disease progression [Unknown]
  - Bone disorder [Fatal]
  - Dermatomyositis [Recovering/Resolving]
  - Malaise [Unknown]
  - Anaemia [Unknown]
  - Asthenia [Recovering/Resolving]
  - Myopathy [Unknown]
  - Skin oedema [Unknown]
  - Swelling [Unknown]
  - Myositis [Unknown]
  - Lymphadenopathy [Unknown]
  - Muscular weakness [Recovering/Resolving]
  - Erythema [Unknown]
  - Periorbital oedema [Unknown]
  - Rash erythematous [Unknown]
  - Pyrexia [Unknown]
  - Blood creatine phosphokinase increased [Recovering/Resolving]

NARRATIVE: CASE EVENT DATE: 20141025
